FAERS Safety Report 10091787 (Version 1)
Quarter: 2014Q2

REPORT INFORMATION
  Report Type: Spontaneous
  Country: US (occurrence: US)
  Receive Date: 20140421
  Receipt Date: 20140421
  Transmission Date: 20141212
  Serious: No
  Sender: FDA-Public Use
  Company Number: US-PURDUE-USA-2006-0023436

PATIENT
  Sex: Female

DRUGS (16)
  1. OXYIR [Suspect]
     Indication: PAIN
     Dosage: 5 MG, UNK
     Route: 048
  2. OXYCODONE [Suspect]
     Indication: PAIN
     Dosage: UNK, UNK
     Route: 048
  3. PREDNISOLONE [Concomitant]
  4. NORVASC [Concomitant]
  5. ATENOLOL [Concomitant]
  6. HYDRODIURO [Concomitant]
  7. METHOTREXATE [Concomitant]
  8. ACTOS [Concomitant]
  9. XANAX [Concomitant]
  10. LYRICA [Concomitant]
  11. CYMBALTA [Concomitant]
  12. NORTRIPTYLINE [Concomitant]
  13. NEXIUM                             /01479303/ [Concomitant]
  14. LUNESTA [Concomitant]
  15. POTASSIUM CHLORIDE [Concomitant]
  16. MULTIVITAMINS [Concomitant]

REACTIONS (4)
  - Pain [Unknown]
  - Abdominal pain upper [Unknown]
  - Discomfort [Unknown]
  - Flatulence [Unknown]
